FAERS Safety Report 13563723 (Version 1)
Quarter: 2017Q2

REPORT INFORMATION
  Report Type: Spontaneous
  Country: LT (occurrence: LT)
  Receive Date: 20170519
  Receipt Date: 20170519
  Transmission Date: 20170830
  Serious: Yes (Life-Threatening)
  Sender: FDA-Public Use
  Company Number: LT-PFIZER INC-2017216532

PATIENT
  Age: 52 Year
  Sex: Female
  Weight: 104 kg

DRUGS (2)
  1. TRIFAS /00918101/ [Concomitant]
     Dosage: UNK
  2. SORTIS [Suspect]
     Active Substance: ATORVASTATIN
     Indication: HYPERCHOLESTEROLAEMIA
     Dosage: 80 MG, 1X/DAY
     Route: 048
     Dates: start: 20170320, end: 20170407

REACTIONS (3)
  - Dyspnoea [Unknown]
  - Generalised oedema [Unknown]
  - Protein urine present [Unknown]

NARRATIVE: CASE EVENT DATE: 20170327
